FAERS Safety Report 7539928-2 (Version None)
Quarter: 2011Q2

REPORT INFORMATION
  Report Type: 
  Country: None (occurrence: None)
  Receive Date: 20110610
  Receipt Date: 20110525
  Transmission Date: 20111010
  Serious: Yes (Hospitalization)
  Sender: FDA-Public Use
  Company Number: JP-BAYER-2011-045370

PATIENT
  Age: 62 Year
  Sex: Female
  Weight: 56.5 kg

DRUGS (13)
  1. CORTRIL [Concomitant]
     Dosage: UNK
     Dates: start: 20100116, end: 20110324
  2. LANSOPRAZOLE [Concomitant]
     Indication: GASTRITIS PROPHYLAXIS
     Dosage: UNK
     Dates: start: 20101130
  3. ASPARA [ASPARTATE POTASSIUM,MAGNESIUM ASPARTATE] [Concomitant]
     Indication: BLOOD POTASSIUM DECREASED
     Dosage: UNK
     Dates: start: 20110131
  4. HIRUDOID [Concomitant]
     Indication: PROPHYLAXIS
     Dosage: UNK
     Dates: start: 20100115
  5. LEVOTHYROXINE SODIUM [Concomitant]
     Indication: HYPOTHYROIDISM
     Dosage: UNK
     Dates: start: 20101229
  6. LASIX [Concomitant]
     Indication: OEDEMA
     Dosage: UNK
     Dates: start: 20101023
  7. CORTRIL [Concomitant]
     Indication: STEROID THERAPY
     Dosage: UNK
     Dates: start: 20070101, end: 20110324
  8. CORTRIL [Concomitant]
     Dosage: 30 MG, QD
     Dates: start: 20110328
  9. URSO 250 [Concomitant]
     Indication: PROPHYLAXIS
     Dosage: UNK
     Dates: start: 20100326
  10. SORAFENIB (RAF KINASE INHIBITOR) [Suspect]
     Indication: METASTATIC RENAL CELL CARCINOMA
     Dosage: 400 MG, QD
     Route: 048
     Dates: start: 20100115, end: 20110311
  11. DIOVANE [Concomitant]
     Indication: HYPERTENSION
     Dosage: UNK
     Dates: start: 20101229, end: 20110311
  12. ADALAT CC [Concomitant]
     Indication: HYPERTENSION
     Dosage: UNK
     Dates: start: 20100928, end: 20110311
  13. PREDNISOLONE [Concomitant]
     Indication: STEROID THERAPY
     Dosage: UNK
     Dates: start: 20100115, end: 20110325

REACTIONS (3)
  - STOMATITIS [None]
  - ADRENAL INSUFFICIENCY [None]
  - DIARRHOEA [None]
